APPROVED DRUG PRODUCT: DOCETAXEL
Active Ingredient: DOCETAXEL
Strength: 160MG/8ML (20MG/ML)
Dosage Form/Route: INJECTABLE;INJECTION
Application: N203551 | Product #004 | TE Code: AP
Applicant: ACTAVIS LLC AN INDIRECT WHOLLY OWNED SUB OF TEVA PHARMACEUTICALS USA INC
Approved: Sep 21, 2015 | RLD: No | RS: No | Type: RX